FAERS Safety Report 8831269 (Version 1)
Quarter: 2012Q4

REPORT INFORMATION
  Report Type: 
  Country: US (occurrence: US)
  Receive Date: 20121008
  Receipt Date: 20121008
  Transmission Date: 20130627
  Serious: No
  Sender: FDA-Public Use
  Company Number: US-VERTEX PHARMACEUTICAL INC.-2012-021393

PATIENT
  Age: 45 None
  Sex: Male
  Weight: 64 kg

DRUGS (8)
  1. INCIVEK [Suspect]
     Indication: HEPATITIS C
     Dosage: 750 mg, UNK
     Route: 048
     Dates: start: 20120903
  2. RIBAVIRIN [Suspect]
     Indication: HEPATITIS C
     Dosage: UNK
     Route: 048
     Dates: start: 20120903
  3. PEGASYS [Suspect]
     Indication: HEPATITIS C
     Dosage: 180 ?g, UNK
     Route: 058
     Dates: start: 20120903
  4. PREZISTA [Concomitant]
     Indication: HIV INFECTION
     Dosage: 800 mg, qd
  5. NORVIR [Concomitant]
     Indication: HIV INFECTION
     Dosage: 100 mg, qd
     Route: 048
  6. CYMBALTA [Concomitant]
     Indication: DEPRESSION
     Dosage: 60 mg, qd
     Route: 048
  7. TIZANIDINE [Concomitant]
     Indication: MUSCLE RELAXANT THERAPY
     Dosage: 4 mg, qd
     Route: 048
  8. RANITIDINE [Concomitant]
     Indication: GASTROOESOPHAGEAL REFLUX DISEASE
     Dosage: 150 mg, qd
     Route: 048

REACTIONS (4)
  - Oedema [Not Recovered/Not Resolved]
  - Feeling hot [Not Recovered/Not Resolved]
  - Off label use [Unknown]
  - Fatigue [Not Recovered/Not Resolved]
